FAERS Safety Report 8470874-6 (Version None)
Quarter: 2012Q2

REPORT INFORMATION
  Report Type: 
  Country: None (occurrence: None)
  Receive Date: 20120627
  Receipt Date: 20120620
  Transmission Date: 20120825
  Serious: Yes (Other)
  Sender: FDA-Public Use
  Company Number: ES-BRISTOL-MYERS SQUIBB COMPANY-16699456

PATIENT
  Sex: Male

DRUGS (1)
  1. ZERIT [Suspect]
     Dosage: FOR A LONG TIME

REACTIONS (1)
  - DEMENTIA [None]
